FAERS Safety Report 20745276 (Version 1)
Quarter: 2022Q2

REPORT INFORMATION
  Report Type: Spontaneous
  Country: US (occurrence: None)
  Receive Date: 20220422
  Receipt Date: 20220422
  Transmission Date: 20220721
  Serious: Yes (Congenital Anomaly)
  Sender: FDA-Public Use
  Company Number: None

PATIENT
  Age: 54 Year
  Sex: Male
  Weight: 87.75 kg

DRUGS (11)
  1. AVENTYL [Suspect]
     Active Substance: NORTRIPTYLINE HYDROCHLORIDE
     Indication: Anxiety
     Route: 048
     Dates: start: 19680101, end: 19680331
  2. SERTRALINE [Concomitant]
     Active Substance: SERTRALINE HYDROCHLORIDE
  3. TRAZODONE [Concomitant]
     Active Substance: TRAZODONE HYDROCHLORIDE
  4. QUETIAPINE [Concomitant]
     Active Substance: QUETIAPINE
  5. fumarate [Concomitant]
  6. CLONAZEPAM [Concomitant]
     Active Substance: CLONAZEPAM
  7. DIVALPROEX SODIUM [Concomitant]
     Active Substance: DIVALPROEX SODIUM
  8. BUPROPION [Concomitant]
     Active Substance: BUPROPION
  9. PALIPERIDONE PALMITATE [Concomitant]
  10. VITAMIN D3 [Concomitant]
     Active Substance: CHOLECALCIFEROL
  11. FISH OIL [Concomitant]

REACTIONS (9)
  - Exposure during pregnancy [None]
  - Mental disorder [None]
  - Schizophrenia [None]
  - Depression [None]
  - Anxiety [None]
  - Behaviour disorder [None]
  - Disturbance in attention [None]
  - Psychomotor hyperactivity [None]
  - Social avoidant behaviour [None]

NARRATIVE: CASE EVENT DATE: 19680331
